FAERS Safety Report 18897912 (Version 1)
Quarter: 2021Q1

REPORT INFORMATION
  Report Type: Spontaneous
  Country: US (occurrence: US)
  Receive Date: 20210212
  Receipt Date: 20210212
  Transmission Date: 20210420
  Serious: No
  Sender: FDA-Public Use
  Company Number: None

PATIENT
  Sex: Female
  Weight: 15.75 kg

DRUGS (5)
  1. ZYRTEC [Concomitant]
     Active Substance: CETIRIZINE HYDROCHLORIDE
  2. CPAP [Concomitant]
     Active Substance: DEVICE
  3. DESONIDE. [Concomitant]
     Active Substance: DESONIDE
  4. MELETONIN [Concomitant]
  5. MONTELUKAST [Suspect]
     Active Substance: MONTELUKAST SODIUM
     Indication: MULTIPLE ALLERGIES
     Route: 048

REACTIONS (8)
  - Emotional disorder [None]
  - Condition aggravated [None]
  - Anger [None]
  - Behaviour disorder [None]
  - Sleep disorder [None]
  - Nightmare [None]
  - Enuresis [None]
  - Urinary incontinence [None]
